FAERS Safety Report 9665658 (Version 2)
Quarter: 2013Q4

REPORT INFORMATION
  Report Type: Report from Study
  Country: US (occurrence: US)
  Receive Date: 20131104
  Receipt Date: 20131130
  Transmission Date: 20140711
  Serious: No
  Sender: FDA-Public Use
  Company Number: PHEH2013US022602

PATIENT
  Sex: Female

DRUGS (3)
  1. TASIGNA [Suspect]
     Indication: CHRONIC MYELOID LEUKAEMIA
     Dosage: 300 MG, BID
     Route: 048
     Dates: start: 20130409
  2. LIPITOR [Concomitant]
     Dosage: 20 MG, QHS
  3. AZASITE [Concomitant]
     Dosage: 1 DF, QHS

REACTIONS (2)
  - Discomfort [Not Recovered/Not Resolved]
  - Inappropriate schedule of drug administration [Unknown]
